FAERS Safety Report 9423502 (Version 3)
Quarter: 2013Q3

REPORT INFORMATION
  Report Type: Report from Study
  Country: JP (occurrence: JP)
  Receive Date: 20130726
  Receipt Date: 20130904
  Transmission Date: 20140515
  Serious: Yes (Death, Life-Threatening, Hospitalization)
  Sender: FDA-Public Use
  Company Number: JP-CELGENEUS-087-21660-13073644

PATIENT
  Age: 72 Year
  Sex: Male
  Weight: 54 kg

DRUGS (23)
  1. ABRAXANE [Suspect]
     Indication: METASTATIC GASTRIC CANCER
     Route: 041
     Dates: start: 20130523, end: 20130709
  2. CELECOX [Concomitant]
     Indication: PYREXIA
     Dosage: 200 MILLIGRAM
     Route: 048
     Dates: start: 20120718
  3. HIRUDOID [Concomitant]
     Indication: ONYCHOMADESIS
     Route: 048
     Dates: start: 20120724
  4. KENALOG [Concomitant]
     Indication: MUCOSAL INFLAMMATION
     Route: 048
     Dates: start: 20120803
  5. BIO-THREE [Concomitant]
     Indication: DIARRHOEA
     Dosage: 3 TABLET
     Route: 048
     Dates: start: 20120814
  6. PARIET [Concomitant]
     Indication: PRODUCT USED FOR UNKNOWN INDICATION
     Dosage: 10 MILLIGRAM
     Route: 048
     Dates: start: 20120814
  7. LASIX [Concomitant]
     Indication: OEDEMA PERIPHERAL
     Route: 048
     Dates: start: 20121106
  8. METHYCOBAL [Concomitant]
     Indication: PERIPHERAL SENSORY NEUROPATHY
     Dosage: 150 MICROGRAM
     Route: 048
     Dates: start: 20130604
  9. HANGESHASHINTO [Concomitant]
     Indication: MUCOSAL INFLAMMATION
     Dosage: 3 DOSAGE FORMS
     Route: 048
     Dates: start: 20130604
  10. NEUTROGIN [Concomitant]
     Indication: PRODUCT USED FOR UNKNOWN INDICATION
     Dosage: 100 MICROGRAM
     Route: 065
     Dates: start: 20130713
  11. PACKED RED CELLS [Concomitant]
     Indication: PRODUCT USED FOR UNKNOWN INDICATION
     Dosage: 2 UNITS
     Route: 041
     Dates: start: 20130713, end: 20130713
  12. PACKED RED CELLS [Concomitant]
     Dosage: 2 UNITS
     Route: 041
     Dates: start: 20130716, end: 20130716
  13. PACKED RED CELLS [Concomitant]
     Dosage: 2 UNITS
     Route: 041
     Dates: start: 20130717, end: 20130717
  14. PACKED RED CELLS [Concomitant]
     Dosage: 2 UNITS
     Route: 041
     Dates: start: 20130718, end: 20130718
  15. VASOLAN [Concomitant]
     Indication: PRODUCT USED FOR UNKNOWN INDICATION
     Route: 041
     Dates: start: 20130716
  16. RYTHMODAN [Concomitant]
     Indication: PRODUCT USED FOR UNKNOWN INDICATION
     Route: 041
     Dates: start: 20130716
  17. ONOACT [Concomitant]
     Indication: PRODUCT USED FOR UNKNOWN INDICATION
     Route: 041
     Dates: start: 20130716
  18. INOVAN [Concomitant]
     Indication: PRODUCT USED FOR UNKNOWN INDICATION
     Route: 065
     Dates: start: 20130716
  19. NONTHRON [Concomitant]
     Indication: PRODUCT USED FOR UNKNOWN INDICATION
     Dosage: 1500 UNITS
     Route: 041
     Dates: start: 20130716
  20. ALBUMIN [Concomitant]
     Indication: PRODUCT USED FOR UNKNOWN INDICATION
     Route: 041
     Dates: start: 20130716
  21. NORADRENALINE [Concomitant]
     Indication: PRODUCT USED FOR UNKNOWN INDICATION
     Route: 041
     Dates: start: 20130716
  22. ADRENALINE [Concomitant]
     Indication: PRODUCT USED FOR UNKNOWN INDICATION
     Route: 041
     Dates: start: 20130716
  23. ATROPINE [Concomitant]
     Indication: PRODUCT USED FOR UNKNOWN INDICATION
     Route: 041
     Dates: start: 20130716

REACTIONS (2)
  - Pneumonia [Fatal]
  - Febrile neutropenia [Not Recovered/Not Resolved]
